FAERS Safety Report 8287118-0 (Version None)
Quarter: 2012Q2

REPORT INFORMATION
  Report Type: 
  Country: None (occurrence: None)
  Receive Date: 20120416
  Receipt Date: 20120411
  Transmission Date: 20120825
  Serious: Yes (Death)
  Sender: FDA-Public Use
  Company Number: JP-ASTRAZENECA-2012SE20323

PATIENT
  Age: 28984 Day
  Sex: Male
  Weight: 63 kg

DRUGS (2)
  1. NEXIUM [Suspect]
     Indication: GASTROOESOPHAGEAL REFLUX DISEASE
     Route: 048
     Dates: start: 20120222, end: 20120307
  2. GASMOTIN [Suspect]
     Indication: GASTRITIS
     Route: 048
     Dates: start: 20120222, end: 20120307

REACTIONS (1)
  - INTERSTITIAL LUNG DISEASE [None]
